FAERS Safety Report 20616262 (Version 1)
Quarter: 2022Q1

REPORT INFORMATION
  Report Type: Spontaneous
  Country: CN (occurrence: CN)
  Receive Date: 20220321
  Receipt Date: 20220321
  Transmission Date: 20220423
  Serious: Yes (Other)
  Sender: FDA-Public Use
  Company Number: CN-BAXTER-2022BAX006057

PATIENT
  Age: 56 Year
  Sex: Female
  Weight: 62 kg

DRUGS (12)
  1. CYCLOPHOSPHAMIDE [Suspect]
     Active Substance: CYCLOPHOSPHAMIDE
     Indication: Breast cancer female
     Dosage: 1- 2 CYCLE CHEMOTHERAPY
     Route: 042
  2. CYCLOPHOSPHAMIDE [Suspect]
     Active Substance: CYCLOPHOSPHAMIDE
     Dosage: THIRD CYCLE OF CHEMOTHERAPY CYCLOPHOSPHAMIDE FOR INJECTION (ENDOXAN CTX) (790 MG) + NS (40 ML)
     Route: 042
     Dates: start: 20220106, end: 20220106
  3. CYCLOPHOSPHAMIDE [Suspect]
     Active Substance: CYCLOPHOSPHAMIDE
     Dosage: DOSE RE-INTRODUCED, CYCLOPHOSPHAMIDE FOR INJECTION (ENDOXAN CTX) + NS
     Route: 042
  4. SODIUM CHLORIDE [Suspect]
     Active Substance: SODIUM CHLORIDE
     Indication: Medication dilution
     Dosage: 1- 2 CYCLE CHEMOTHERAPY
     Route: 042
  5. SODIUM CHLORIDE [Suspect]
     Active Substance: SODIUM CHLORIDE
     Dosage: THIRD CYCLE OF CHEMOTHERAPY, CYCLOPHOSPHAMIDE FOR INJECTION (ENDOXAN CTX) 790 MG + NS 40ML
     Route: 042
     Dates: start: 20220106, end: 20220106
  6. SODIUM CHLORIDE [Suspect]
     Active Substance: SODIUM CHLORIDE
     Dosage: DOSE RE-INTRODUCED, CYCLOPHOSPHAMIDE FOR INJECTION (ENDOXAN CTX) + NS
     Route: 042
  7. SODIUM CHLORIDE [Suspect]
     Active Substance: SODIUM CHLORIDE
     Dosage: 1-2 CYCLE CHEMOTHERAPY
     Route: 041
  8. SODIUM CHLORIDE [Suspect]
     Active Substance: SODIUM CHLORIDE
     Dosage: THIRD CYCLE CHEMOTHERAPY, EPIRUBICIN HYDROCHLORIDE FOR INJECTION (PHARMORUBICIN) 110 MG + NS 100ML
     Route: 041
     Dates: start: 20220106, end: 20220106
  9. SODIUM CHLORIDE [Suspect]
     Active Substance: SODIUM CHLORIDE
     Dosage: DOSE RE-INTRODUCED, EPIRUBICIN HYDROCHLORIDE FOR INJECTION (PHARMORUBICIN) + NS
     Route: 041
  10. EPIRUBICIN [Suspect]
     Active Substance: EPIRUBICIN
     Indication: Breast cancer female
     Dosage: 1 -2 CYCLE CHEMOTHERAPY
     Route: 041
  11. EPIRUBICIN [Suspect]
     Active Substance: EPIRUBICIN
     Dosage: THIRD CYCLE OF CHEMOTHERAPY, EPIRUBICIN HYDROCHLORIDE (PHARMORUBICIN) (110 MG) + NS (100 ML)
     Route: 041
     Dates: start: 20220106, end: 20220106
  12. EPIRUBICIN [Suspect]
     Active Substance: EPIRUBICIN
     Dosage: DOSE RE-INTRODUCED, EPIRUBICIN HYDROCHLORIDE (PHARMORUBICIN) + NS
     Route: 041

REACTIONS (2)
  - White blood cell count decreased [Recovered/Resolved]
  - Agranulocytosis [Recovered/Resolved]

NARRATIVE: CASE EVENT DATE: 20220113
